FAERS Safety Report 8351253-9 (Version None)
Quarter: 2012Q2

REPORT INFORMATION
  Report Type: 
  Country: None (occurrence: None)
  Receive Date: 20120510
  Receipt Date: 20120502
  Transmission Date: 20120825
  Serious: Yes (Other)
  Sender: FDA-Public Use
  Company Number: BR-PFIZER INC-2012108572

PATIENT
  Age: 79 Year
  Sex: Female
  Weight: 61 kg

DRUGS (5)
  1. DICLOFENAC [Concomitant]
     Indication: OSTEOARTHRITIS
     Dosage: UNK
  2. DORFLEX [Concomitant]
     Indication: OSTEOARTHRITIS
     Dosage: UNK
  3. ENALAPRIL [Concomitant]
     Indication: BLOOD PRESSURE INCREASED
     Dosage: 10 MG, 2X/DAY
  4. XALATAN [Suspect]
     Indication: GLAUCOMA
     Dosage: 3 UG (ONE DROP IN EACH EYE), 1X/DAY
     Route: 047
     Dates: start: 20100101, end: 20111101
  5. LABIRIN [Concomitant]
     Indication: LABYRINTHITIS
     Dosage: UNK
     Dates: end: 20120401

REACTIONS (7)
  - INTRAOCULAR PRESSURE INCREASED [None]
  - SINUSITIS [None]
  - FALL [None]
  - LABYRINTHITIS [None]
  - OSTEOARTHRITIS [None]
  - PAIN IN EXTREMITY [None]
  - JOINT INJURY [None]
